FAERS Safety Report 6615281-3 (Version None)
Quarter: 2010Q1

REPORT INFORMATION
  Report Type: 
  Country: None (occurrence: None)
  Receive Date: 20100301
  Receipt Date: 20100218
  Transmission Date: 20100710
  Serious: Yes (Other)
  Sender: FDA-Public Use
  Company Number: DE-1180832

PATIENT
  Age: 76 Year
  Sex: Male

DRUGS (7)
  1. AZOPT [Suspect]
     Dosage: 1 GTT BID OPHTHALMIC
     Route: 047
     Dates: start: 20051101
  2. PHENPROCOUMON (PHENPROCOUMON) [Concomitant]
  3. SIMVASTATIN [Concomitant]
  4. BISOPROLOL (BISOPROLOL FUMARATE) [Concomitant]
  5. LEVOTHYROXINE SODIUM [Concomitant]
  6. IRBESARTAN + HYDROCHLOROTHIAZIDE [Concomitant]
  7. IVABRADINE (IVABRADINE) [Concomitant]

REACTIONS (3)
  - BRONCHIAL HYPERREACTIVITY [None]
  - COUGH [None]
  - DYSPNOEA [None]
